FAERS Safety Report 10615036 (Version 2)
Quarter: 2015Q1

REPORT INFORMATION
  Report Type: Report from Study
  Country: US (occurrence: US)
  Receive Date: 20141201
  Receipt Date: 20150102
  Transmission Date: 20150720
  Serious: Yes (Hospitalization, Other)
  Sender: FDA-Public Use
  Company Number: PHEH2014US023419

PATIENT
  Age: 17 Year
  Sex: Male
  Weight: 79.6 kg

DRUGS (24)
  1. OXYCONTIN [Concomitant]
     Active Substance: OXYCODONE HYDROCHLORIDE
     Indication: SICKLE CELL ANAEMIA
  2. AMLODIPINE [Concomitant]
     Active Substance: AMLODIPINE BESYLATE
     Indication: HYPERTENSIVE NEPHROPATHY
     Dosage: 5 MG, QD
     Route: 048
     Dates: start: 20120925
  3. CELEBREX [Concomitant]
     Active Substance: CELECOXIB
     Indication: PAIN
     Dosage: 200 MG, QD
     Route: 048
     Dates: start: 20140403
  4. CLONIDINE. [Concomitant]
     Active Substance: CLONIDINE
     Indication: PAIN
     Dosage: 0.1 MG, Q8H
     Route: 048
     Dates: start: 20140718
  5. DEPO TESTOSTERONE [Concomitant]
     Active Substance: TESTOSTERONE
     Indication: HYPOGONADISM
     Dosage: 80 MG, QMO
     Route: 030
     Dates: start: 20141110
  6. DOXEPIN [Concomitant]
     Active Substance: DOXEPIN
     Indication: SICKLE CELL ANAEMIA
  7. OXYCONTIN [Concomitant]
     Active Substance: OXYCODONE HYDROCHLORIDE
     Indication: PAIN
     Dosage: 60 MG, QD
     Route: 048
     Dates: start: 20140701
  8. POTASSIUM CITRATE. [Concomitant]
     Active Substance: POTASSIUM CITRATE
     Indication: SICKLE CELL ANAEMIA
     Dosage: 10 MEQ, QD
     Route: 048
     Dates: start: 20130903
  9. CLONIDINE. [Concomitant]
     Active Substance: CLONIDINE
     Indication: SICKLE CELL ANAEMIA
  10. DOCUSATE SODIUM. [Concomitant]
     Active Substance: DOCUSATE SODIUM
     Indication: CONSTIPATION
     Dosage: 100 MG, QD (PRN)
     Route: 048
     Dates: start: 20121024
  11. EXJADE [Suspect]
     Active Substance: DEFERASIROX
     Dosage: 500 MG, QD
     Route: 048
     Dates: start: 20140724
  12. CELEBREX [Concomitant]
     Active Substance: CELECOXIB
     Indication: SICKLE CELL ANAEMIA
  13. DILAUDID [Concomitant]
     Active Substance: HYDROMORPHONE HYDROCHLORIDE
     Indication: SICKLE CELL ANAEMIA
  14. FLORENT [Concomitant]
     Active Substance: SACCHAROMYCES CEREVISIAE
     Indication: ASTHMA
     Dosage: 2 DF, QD
     Route: 055
     Dates: start: 20141029
  15. HIDROXIUREA [Concomitant]
     Active Substance: HYDROXYUREA
     Indication: SICKLE CELL ANAEMIA
     Dosage: 500 MG, QD
     Route: 048
     Dates: start: 20130903
  16. LACTULOSE. [Concomitant]
     Active Substance: LACTULOSE
     Indication: CONSTIPATION
     Dosage: 20 ML, TID (PRN)
     Route: 048
     Dates: start: 20131202
  17. ALBUTEROL SULFATE. [Concomitant]
     Active Substance: ALBUTEROL SULFATE
     Indication: ASTHMA
     Dosage: 1 DF, Q4H (EVERY 4 TO 6 HOURS PRN)
     Route: 055
  18. DOXEPIN [Concomitant]
     Active Substance: DOXEPIN
     Indication: PAIN
     Dosage: 25 MG, QD
     Route: 048
     Dates: start: 20141030
  19. MORPHINE SULFATE. [Concomitant]
     Active Substance: MORPHINE SULFATE
     Indication: OSTEONECROSIS
     Dosage: 30 MG, Q4H (EVERY 4 OR 6 HOURS)
     Route: 048
     Dates: start: 20130506
  20. PROAIR HFA [Concomitant]
     Active Substance: ALBUTEROL SULFATE
     Indication: ASTHMA
     Dosage: 2 DF, Q4H (PRN)
     Route: 055
     Dates: start: 20100920
  21. GLYCOLAX [Concomitant]
     Active Substance: POLYETHYLENE GLYCOL 3350
     Indication: CONSTIPATION
     Dosage: 17 G, QD (PRN)
     Route: 048
     Dates: start: 20081121
  22. EXJADE [Suspect]
     Active Substance: DEFERASIROX
     Indication: SICKLE CELL ANAEMIA
     Dosage: 500 MG, QD
     Route: 048
     Dates: start: 20140714
  23. DILAUDID [Concomitant]
     Active Substance: HYDROMORPHONE HYDROCHLORIDE
     Indication: PAIN
     Dosage: 4 MG, Q8H (PRN)
     Route: 048
     Dates: start: 20141027
  24. ONDANSETRON [Concomitant]
     Active Substance: ONDANSETRON
     Indication: NAUSEA
     Dosage: 8 MG, Q8H (PRN)
     Route: 048
     Dates: start: 20141030

REACTIONS (6)
  - Pyrexia [Unknown]
  - Acute chest syndrome [Recovered/Resolved]
  - Chest pain [Unknown]
  - Sickle cell anaemia with crisis [Recovered/Resolved]
  - Bacteraemia [Recovered/Resolved]
  - Leukocytosis [Unknown]

NARRATIVE: CASE EVENT DATE: 20141102
